FAERS Safety Report 16205170 (Version 2)
Quarter: 2019Q2

REPORT INFORMATION
  Report Type: Spontaneous
  Country: US (occurrence: US)
  Receive Date: 20190416
  Receipt Date: 20190423
  Transmission Date: 20190711
  Serious: Yes (Other)
  Sender: FDA-Public Use
  Company Number: PHEH2019US015502

PATIENT
  Age: 12 Year
  Sex: Female

DRUGS (2)
  1. VINCRISTINE [Suspect]
     Active Substance: VINCRISTINE
     Indication: ASTROCYTOMA, LOW GRADE
     Dosage: UNK
     Route: 065
  2. CARBOPLATIN. [Suspect]
     Active Substance: CARBOPLATIN
     Indication: ASTROCYTOMA, LOW GRADE
     Dosage: UNK
     Route: 065

REACTIONS (9)
  - Thrombocytopenia [Unknown]
  - VIth nerve paralysis [Unknown]
  - Malignant neoplasm progression [Unknown]
  - Gaze palsy [Unknown]
  - Facial paresis [Unknown]
  - Nodule [Unknown]
  - Bone marrow failure [Unknown]
  - Neutropenia [Unknown]
  - Astrocytoma, low grade [Unknown]

NARRATIVE: CASE EVENT DATE: 20160322
